FAERS Safety Report 16936649 (Version 3)
Quarter: 2019Q4

REPORT INFORMATION
  Report Type: Report from Study
  Country: IE (occurrence: IE)
  Receive Date: 20191018
  Receipt Date: 20191101
  Transmission Date: 20200122
  Serious: Yes (Hospitalization)
  Sender: FDA-Public Use
  Company Number: IE-BAXTER-2019BAX020135

PATIENT
  Age: 52 Year
  Sex: Male

DRUGS (8)
  1. SODIUM CHLORIDE 0.9% INTRAVENOUS INFUSION BP [Suspect]
     Active Substance: SODIUM CHLORIDE
     Dosage: COMPOUNDED WITH TEICOPLANIN AND WATER FOR INJECTIONS PH EUR (DOSE RE-INTRODUCED)
     Route: 042
     Dates: start: 20191016
  2. WATER FOR INJECTION [Suspect]
     Active Substance: WATER
     Indication: MEDICATION DILUTION
     Route: 042
     Dates: start: 20191015, end: 20191015
  3. DAPTOMYCIN. [Suspect]
     Active Substance: DAPTOMYCIN
     Indication: PRODUCT USED FOR UNKNOWN INDICATION
     Route: 065
     Dates: start: 20190918, end: 20190924
  4. TEICOPLANIN [Suspect]
     Active Substance: TEICOPLANIN
     Indication: OSTEOMYELITIS
     Route: 042
     Dates: start: 20191015, end: 20191015
  5. WATER FOR INJECTION [Suspect]
     Active Substance: WATER
     Dosage: DOSE RE-INTRODUCED
     Route: 042
     Dates: start: 20191016
  6. SODIUM CHLORIDE 0.9% INTRAVENOUS INFUSION BP [Suspect]
     Active Substance: SODIUM CHLORIDE
     Dosage: COMPOUNDED WITH TEICOPLANIN AND WATER FOR INJECTIONS PH EUR
     Route: 042
     Dates: start: 20191015, end: 20191015
  7. TEICOPLANIN [Suspect]
     Active Substance: TEICOPLANIN
     Dosage: DOSE RE-INTRODUCED
     Route: 042
     Dates: start: 20191016
  8. SODIUM CHLORIDE 0.9% INTRAVENOUS INFUSION BP [Suspect]
     Active Substance: SODIUM CHLORIDE
     Indication: MEDICATION DILUTION
     Dosage: COMPOUNDED WITH DAPTOMYCIN
     Route: 065
     Dates: start: 20190918, end: 20190924

REACTIONS (3)
  - Hyperventilation [Recovering/Resolving]
  - Pneumonitis [Recovered/Resolved]
  - Chills [Recovering/Resolving]

NARRATIVE: CASE EVENT DATE: 20190924
